FAERS Safety Report 5339245-5 (Version None)
Quarter: 2007Q2

REPORT INFORMATION
  Report Type: 
  Country: None (occurrence: None)
  Receive Date: 20070329
  Receipt Date: 20060329
  Transmission Date: 20071010
  Serious: Yes (Other)
  Sender: FDA-Public Use
  Company Number: A03200601904

PATIENT
  Age: 87 Year
  Sex: Female
  Weight: 56.6996 kg

DRUGS (2)
  1. AMBIEN [Suspect]
     Indication: INSOMNIA
     Dosage: 12.5 MG HS - ORAL
     Route: 048
  2. ATORVASTATIN CALCIUM [Concomitant]

REACTIONS (4)
  - DRUG INEFFECTIVE [None]
  - HALLUCINATION [None]
  - MEMORY IMPAIRMENT [None]
  - SLEEP WALKING [None]
